FAERS Safety Report 12933649 (Version 1)
Quarter: 2016Q4

REPORT INFORMATION
  Report Type: Report from Study
  Country: None (occurrence: DE)
  Receive Date: 20161111
  Receipt Date: 20161111
  Transmission Date: 20170207
  Serious: Yes (Hospitalization)
  Sender: FDA-Public Use
  Company Number: DE-ABBVIE-16P-062-1773998-00

PATIENT
  Age: 85 Year
  Sex: Male

DRUGS (3)
  1. CEFTRIAXON [Concomitant]
     Active Substance: CEFTRIAXONE
     Indication: PRODUCT USED FOR UNKNOWN INDICATION
  2. DUODOPA [Suspect]
     Active Substance: CARBIDOPA\LEVODOPA
     Indication: PARKINSON^S DISEASE
     Dosage: MD 7,0 ML; CRD 2,1 ML/H; ED 1,0 ML
     Route: 050
     Dates: start: 20161013
  3. DUODOPA [Suspect]
     Active Substance: CARBIDOPA\LEVODOPA
     Route: 050

REACTIONS (8)
  - Urinary tract disorder [Not Recovered/Not Resolved]
  - Myocardial infarction [Not Recovered/Not Resolved]
  - Night sweats [Not Recovered/Not Resolved]
  - Pyrexia [Not Recovered/Not Resolved]
  - Dysphagia [Not Recovered/Not Resolved]
  - Diabetes mellitus [Not Recovered/Not Resolved]
  - Diarrhoea [Not Recovered/Not Resolved]
  - Akinesia [Not Recovered/Not Resolved]

NARRATIVE: CASE EVENT DATE: 20161023
